FAERS Safety Report 8524649-X (Version None)
Quarter: 2012Q3

REPORT INFORMATION
  Report Type: 
  Country: None (occurrence: None)
  Receive Date: 20120720
  Receipt Date: 20120716
  Transmission Date: 20120928
  Serious: Yes (Death)
  Sender: FDA-Public Use
  Company Number: US-009507513-1207USA002266

PATIENT

DRUGS (10)
  1. CLARITIN [Concomitant]
  2. JANUVIA [Suspect]
     Indication: DIABETES MELLITUS
     Dosage: 100 MG, QD
     Route: 048
     Dates: start: 20120615
  3. TRILIPIX [Concomitant]
  4. ENALAPRIL MALEATE [Concomitant]
  5. CARAFATE [Concomitant]
     Dosage: 1 UNK, UNK
  6. LEVOTHROID [Concomitant]
     Dosage: 0.05 MICROGRAM, UNK
  7. LEVEMIR [Concomitant]
  8. CRESTOR [Concomitant]
     Dosage: 20 MG, UNK
  9. DEXILANT [Concomitant]
  10. TRAMADOL HCL [Concomitant]

REACTIONS (3)
  - WEIGHT DECREASED [None]
  - SEPSIS [None]
  - ABDOMINAL STRANGULATED HERNIA [None]
